FAERS Safety Report 6381825-2 (Version None)
Quarter: 2009Q3

REPORT INFORMATION
  Report Type: 
  Country: None (occurrence: None)
  Receive Date: 20090930
  Receipt Date: 20090928
  Transmission Date: 20100115
  Serious: Yes (Death, Hospitalization)
  Sender: FDA-Public Use
  Company Number: IN-ELI_LILLY_AND_COMPANY-IN200909006532

PATIENT
  Age: 63 Year
  Sex: Male
  Weight: 70 kg

DRUGS (4)
  1. XIGRIS [Suspect]
     Indication: SEPSIS
     Dosage: UNK, UNKNOWN
     Route: 042
     Dates: start: 20090927
  2. ANTIBIOTICS [Concomitant]
     Indication: PNEUMONIA
     Dosage: UNK, UNKNOWN
     Dates: start: 20090924
  3. VASOPRESSIN [Concomitant]
     Indication: PNEUMONIA
     Dosage: UNK, UNKNOWN
     Dates: start: 20090924
  4. DOPAMINE HCL [Concomitant]
     Indication: PNEUMONIA
     Dosage: UNK, UNKNOWN
     Dates: start: 20090924

REACTIONS (1)
  - BLOOD PRESSURE DECREASED [None]
